FAERS Safety Report 10610496 (Version 2)
Quarter: 2014Q4

REPORT INFORMATION
  Report Type: Spontaneous
  Country: US (occurrence: US)
  Receive Date: 20141126
  Receipt Date: 20141126
  Transmission Date: 20150529
  Serious: Yes (Hospitalization)
  Sender: FDA-Public Use
  Company Number: US-MALLINCKRODT-T201402694

PATIENT
  Age: 14 Year
  Sex: Male

DRUGS (4)
  1. BACLOFEN. [Concomitant]
     Active Substance: BACLOFEN
     Dosage: 20 MG, Q4H
  2. GABLOFEN [Suspect]
     Active Substance: BACLOFEN
     Indication: MUSCLE SPASTICITY
     Dosage: 419.3 MCG/DAY
     Route: 037
     Dates: start: 20140813
  3. GABLOFEN [Suspect]
     Active Substance: BACLOFEN
     Dosage: 213.5 MCG/DAY
     Route: 037
  4. TRANXENE T-TAB [Concomitant]
     Active Substance: CLORAZEPATE DIPOTASSIUM
     Dosage: 3.75 MG, Q6H

REACTIONS (7)
  - Device kink [Unknown]
  - Irritability [Unknown]
  - Drug withdrawal syndrome [Not Recovered/Not Resolved]
  - Cerebrospinal fluid leakage [Unknown]
  - Incision site infection [Not Recovered/Not Resolved]
  - Wound dehiscence [Unknown]
  - Muscle spasticity [Recovering/Resolving]

NARRATIVE: CASE EVENT DATE: 20140824
